FAERS Safety Report 9324023 (Version 3)
Quarter: 2014Q1

REPORT INFORMATION
  Report Type: Spontaneous
  Country: GB (occurrence: GB)
  Receive Date: 20130603
  Receipt Date: 20140123
  Transmission Date: 20141002
  Serious: Yes (Life-Threatening, Hospitalization)
  Sender: FDA-Public Use
  Company Number: GB-SANOFI-AVENTIS-2013SA053124

PATIENT
  Age: 72 Year
  Sex: Male

DRUGS (13)
  1. CLOPIDOGREL BISULFATE [Suspect]
     Indication: ISCHAEMIC HEART DISEASE PROPHYLAXIS
     Route: 048
     Dates: start: 20120626
  2. CLOPIDOGREL BISULFATE [Suspect]
     Indication: PROPHYLAXIS
     Route: 048
     Dates: start: 20120626
  3. ASPIRIN [Suspect]
     Indication: ANTIPLATELET THERAPY
     Route: 048
     Dates: start: 20120626
  4. ASPIRIN [Suspect]
     Indication: ISCHAEMIC HEART DISEASE PROPHYLAXIS
     Route: 048
     Dates: start: 20120626
  5. ASPIRIN [Suspect]
     Indication: ANTIPLATELET THERAPY
     Route: 048
     Dates: start: 201206, end: 20120617
  6. ASPIRIN [Suspect]
     Indication: ISCHAEMIC HEART DISEASE PROPHYLAXIS
     Route: 048
     Dates: start: 201206, end: 20120617
  7. EPLERENONE [Suspect]
     Indication: ACUTE MYOCARDIAL INFARCTION
     Route: 065
     Dates: start: 20120625, end: 20120625
  8. EPLERENONE [Suspect]
     Indication: ACUTE MYOCARDIAL INFARCTION
     Route: 065
     Dates: start: 20120626, end: 20121003
  9. ATORVASTATIN [Concomitant]
  10. BISOPROLOL [Concomitant]
  11. FUROSEMIDE [Concomitant]
     Indication: PULMONARY OEDEMA
  12. PERINDOPRIL [Concomitant]
  13. GLYCERYL TRINITRATE [Concomitant]

REACTIONS (1)
  - Iron deficiency anaemia [Recovered/Resolved]
